FAERS Safety Report 13367562 (Version 1)
Quarter: 2017Q1

REPORT INFORMATION
  Report Type: Spontaneous
  Country: US (occurrence: US)
  Receive Date: 20170324
  Receipt Date: 20170324
  Transmission Date: 20170429
  Serious: No
  Sender: FDA-Public Use
  Company Number: US-ZYDUS-010485

PATIENT
  Age: 58 Year
  Sex: Female

DRUGS (12)
  1. ESCITALOPRAM [Concomitant]
     Active Substance: ESCITALOPRAM OXALATE
     Indication: VESTIBULAR DISORDER
  2. LAMOTRIGINE. [Suspect]
     Active Substance: LAMOTRIGINE
     Indication: VESTIBULAR DISORDER
     Route: 048
     Dates: start: 201510
  3. LEVOTHYROXINE. [Concomitant]
     Active Substance: LEVOTHYROXINE
     Indication: HYPOTHYROIDISM
  4. LORAZEPAM. [Concomitant]
     Active Substance: LORAZEPAM
     Indication: VESTIBULAR DISORDER
  5. L-METHYLFOLATE CALCIUM [Concomitant]
     Active Substance: LEVOMEFOLATE CALCIUM
  6. FAMCICLOVIR. [Concomitant]
     Active Substance: FAMCICLOVIR
     Indication: HERPES ZOSTER
     Dates: start: 201510
  7. MELATONIN [Concomitant]
     Active Substance: MELATONIN
     Indication: SLEEP DISORDER
  8. ESTROGENS CONJUGATED [Concomitant]
     Active Substance: ESTROGENS, CONJUGATED
     Indication: MENOPAUSE
     Dates: start: 1985
  9. CYCLOBENZAPRINE [Concomitant]
     Active Substance: CYCLOBENZAPRINE
     Indication: MUSCLE RELAXANT THERAPY
  10. BUPROPION. [Concomitant]
     Active Substance: BUPROPION
     Indication: ANXIETY
  11. METHOTREXATE/METHOTREXATE SODIUM [Concomitant]
     Indication: AUTOIMMUNE DISORDER
     Dates: start: 201510
  12. DICHLORALPHENAZONE/ISOMETHEPTENE/PARACETAMOL [Concomitant]
     Indication: MIGRAINE PROPHYLAXIS

REACTIONS (6)
  - Contusion [Not Recovered/Not Resolved]
  - Rash papular [Not Recovered/Not Resolved]
  - Asthenopia [Not Recovered/Not Resolved]
  - Arthralgia [Not Recovered/Not Resolved]
  - Vein disorder [Not Recovered/Not Resolved]
  - Vaginal inflammation [Not Recovered/Not Resolved]

NARRATIVE: CASE EVENT DATE: 201512
